FAERS Safety Report 9222482 (Version 1)
Quarter: 2013Q2

REPORT INFORMATION
  Report Type: Spontaneous
  Country: IT (occurrence: IT)
  Receive Date: 20130410
  Receipt Date: 20130410
  Transmission Date: 20140414
  Serious: Yes (Other)
  Sender: FDA-Public Use
  Company Number: IT-MYLANLABS-2013S1007234

PATIENT
  Age: 62 Year
  Sex: Female

DRUGS (1)
  1. DOXAZOSIN [Suspect]
     Indication: HYPERTENSION
     Route: 048
     Dates: start: 20130311, end: 20130311

REACTIONS (3)
  - Erythema [Recovering/Resolving]
  - Pruritus [Recovering/Resolving]
  - Urticaria [Recovering/Resolving]
